FAERS Safety Report 16725428 (Version 2)
Quarter: 2020Q3

REPORT INFORMATION
  Report Type: Report from Study
  Country: US (occurrence: US)
  Receive Date: 20190821
  Receipt Date: 20200708
  Transmission Date: 20201104
  Serious: Yes (Other)
  Sender: FDA-Public Use
  Company Number: US-PFIZER INC-2019353791

PATIENT

DRUGS (4)
  1. GEMCITABINE HYDROCHLORIDE. [Suspect]
     Active Substance: GEMCITABINE HYDROCHLORIDE
     Dosage: UNK, CYCLIC (FOURTH CYCLE OF GEMCITABINE DURING WEEKS 12 TO 14)
     Route: 042
  2. ADAVOSERTIB. [Suspect]
     Active Substance: ADAVOSERTIB
     Dosage: UNK (FOURTH CYCLE OF AZD1775 DURING WEEKS 12 TO 14)
     Route: 048
  3. ADAVOSERTIB. [Suspect]
     Active Substance: ADAVOSERTIB
     Indication: ADENOCARCINOMA PANCREAS
     Dosage: 175 MG, UNK (3 TO 4 HOURS AND 24 HOURS AFTER EACH GEMCITABINE INFUSION ON DAYS 1, 2, 8, AND 9)
     Route: 048
  4. GEMCITABINE HYDROCHLORIDE. [Suspect]
     Active Substance: GEMCITABINE HYDROCHLORIDE
     Indication: ADENOCARCINOMA PANCREAS
     Dosage: 1000 MG/M2, CYCLIC (OVER 30 MINUTES ON DAYS 1 AND 8 OF EACH 3?WEEK CYCLE)
     Route: 042

REACTIONS (1)
  - Fatigue [Unknown]
